FAERS Safety Report 21158018 (Version 7)
Quarter: 2023Q2

REPORT INFORMATION
  Report Type: Report from Study
  Country: CH (occurrence: CH)
  Receive Date: 20220801
  Receipt Date: 20230404
  Transmission Date: 20230721
  Serious: Yes (Hospitalization, Other)
  Sender: FDA-Public Use
  Company Number: CH-ABBVIE-22K-151-4487056-00

PATIENT
  Age: 58 Year
  Sex: Female
  Weight: 70 kg

DRUGS (25)
  1. CARBIDOPA\LEVODOPA [Suspect]
     Active Substance: CARBIDOPA\LEVODOPA
     Indication: Parkinson^s disease
     Dosage: FREQUENCY TEXT: 24H THERAPY
     Route: 050
     Dates: start: 20170321
  2. CARBIDOPA\LEVODOPA [Suspect]
     Active Substance: CARBIDOPA\LEVODOPA
     Dosage: MD: 3.5 ML, CRD: 4.5 ML/H, CRN: 2.8 ML/H, ED: 2.0 ML, 24H THERAPY
     Route: 050
     Dates: start: 20220123, end: 20220401
  3. CARBIDOPA\LEVODOPA [Suspect]
     Active Substance: CARBIDOPA\LEVODOPA
     Dosage: MD: 3.7 ML, CRD: 4.5 ML/H, CRN: 2.8 ML/H, ED: 2.0 ML,24H THERAPY
     Route: 050
     Dates: start: 20220401, end: 20220419
  4. CARBIDOPA\LEVODOPA [Suspect]
     Active Substance: CARBIDOPA\LEVODOPA
     Dosage: MD: 3.8 ML, CRD: 4.8 ML/H, CRN: 2.8 ML/H, ED: 2.0 ML,24H THERAPY
     Route: 050
     Dates: start: 20220419, end: 20220714
  5. CARBIDOPA\LEVODOPA [Suspect]
     Active Substance: CARBIDOPA\LEVODOPA
     Dosage: MD: 3.8 ML, CRD: 4.6 ML/H, CRN: 2.8 ML/H, ED: 2.0 ML,24H THERAPY
     Route: 050
     Dates: start: 20220714
  6. CARBIDOPA\LEVODOPA [Suspect]
     Active Substance: CARBIDOPA\LEVODOPA
     Dosage: MD: 3.8 ML, CRD: 4.9 ML/H, AD 4.7 ML/H, CRN: 3 ML/H, ED: 2 ML,24H THERAPY
     Route: 050
     Dates: start: 20230222
  7. SODIUM PICOSULFATE [Concomitant]
     Active Substance: SODIUM PICOSULFATE
     Indication: Product used for unknown indication
     Dosage: FREQUENCY TEXT: IN RESERVE MAX 20
  8. TRAZODONE HYDROCHLORIDE [Concomitant]
     Active Substance: TRAZODONE HYDROCHLORIDE
     Indication: Product used for unknown indication
  9. MAGNESIUM [Concomitant]
     Active Substance: MAGNESIUM
     Indication: Product used for unknown indication
     Dosage: FREQUENCY TEXT: 0-0-1
  10. MACROGOLUM 3350 [Concomitant]
     Indication: Product used for unknown indication
     Dosage: FREQUENCY TEXT: 1-0-0-0
  11. QUETIAPINE FUMARATE [Concomitant]
     Active Substance: QUETIAPINE FUMARATE
     Indication: Product used for unknown indication
     Dosage: FREQUENCY TEXT: 0-0-0-1, TEXT: 1-1-1/2-0
  12. HEMP [Concomitant]
     Active Substance: HEMP
     Indication: Product used for unknown indication
     Dosage: FREQUENCY TEXT: 40-40-40-0
  13. COMTAN [Concomitant]
     Active Substance: ENTACAPONE
     Indication: Product used for unknown indication
     Dosage: FREQUENCY TEXT: 1/2-1/2-1/2-0
  14. MEFENAMIC ACID [Concomitant]
     Active Substance: MEFENAMIC ACID
     Indication: Product used for unknown indication
     Dosage: FREQUENCY TEXT: 0-1-1-0
  15. PREGABALIN [Concomitant]
     Active Substance: PREGABALIN
     Indication: Product used for unknown indication
     Dosage: FREQUENCY TEXT: 1-1-0-1
  16. PANTOPRAZOLE SODIUM [Concomitant]
     Active Substance: PANTOPRAZOLE SODIUM
     Indication: Product used for unknown indication
  17. ZOLPIDEM TARTRATE [Concomitant]
     Active Substance: ZOLPIDEM TARTRATE
     Indication: Product used for unknown indication
     Dosage: FREQUENCY TEXT: 0-0-0-1
  18. LORAZEPAM [Concomitant]
     Active Substance: LORAZEPAM
     Indication: Product used for unknown indication
     Dosage: FREQUENCY TEXT: IN RESERVE MAX 5/24H
  19. LORAZEPAM [Concomitant]
     Active Substance: LORAZEPAM
     Indication: Product used for unknown indication
     Dosage: FREQUENCY TEXT: 1-0-0-1
  20. QUETIAPINE FUMARATE [Concomitant]
     Active Substance: QUETIAPINE FUMARATE
     Indication: Product used for unknown indication
     Dosage: FREQUENCY TEXT: 0-0-0-1
  21. QUETIAPINE FUMARATE [Concomitant]
     Active Substance: QUETIAPINE FUMARATE
     Indication: Product used for unknown indication
     Dosage: TEXT: 1-1-1/2-0, IN RESERVE, MAX. 2/24H
  22. CHOLECALCIFEROL [Concomitant]
     Active Substance: CHOLECALCIFEROL
     Indication: Product used for unknown indication
     Dosage: FREQUENCY TEXT: 0-60-0-0 ON TUESDAY
  23. TROSPIUM [Concomitant]
     Active Substance: TROSPIUM
     Indication: Product used for unknown indication
     Dosage: FREQUENCY TEXT: 0-0-1-0
  24. BENSERAZIDE HYDROCHLORIDE\LEVODOPA [Concomitant]
     Active Substance: BENSERAZIDE HYDROCHLORIDE\LEVODOPA
     Indication: Product used for unknown indication
  25. KALII NATRII TARTRAS TETRAHYDRICUS [Concomitant]
     Indication: Product used for unknown indication
     Dosage: FREQUENCY TEXT: 1-0-0-0

REACTIONS (7)
  - Psychiatric symptom [Recovered/Resolved]
  - Seizure [Unknown]
  - Restlessness [Not Recovered/Not Resolved]
  - Fatigue [Unknown]
  - Psychiatric decompensation [Not Recovered/Not Resolved]
  - Panic attack [Not Recovered/Not Resolved]
  - Dyskinesia [Not Recovered/Not Resolved]

NARRATIVE: CASE EVENT DATE: 20220728
